FAERS Safety Report 23964515 (Version 3)
Quarter: 2024Q3

REPORT INFORMATION
  Report Type: Spontaneous
  Country: US (occurrence: US)
  Receive Date: 20240612
  Receipt Date: 20240712
  Transmission Date: 20241016
  Serious: No
  Sender: JOHNSON AND JOHNSON
  Company Number: US-JNJFOC-20240626100

PATIENT
  Age: 21 Year
  Weight: 67.2 kg

DRUGS (2)
  1. RILPIVIRINE [Suspect]
     Active Substance: RILPIVIRINE
     Indication: HIV infection
     Route: 030
     Dates: start: 20240416
  2. CABOTEGRAVIR [Suspect]
     Active Substance: CABOTEGRAVIR
     Indication: Product used for unknown indication
     Route: 030

REACTIONS (2)
  - Injection related reaction [Recovered/Resolved]
  - Product physical consistency issue [Unknown]

NARRATIVE: CASE EVENT DATE: 20240416
